FAERS Safety Report 6212079-5 (Version None)
Quarter: 2009Q2

REPORT INFORMATION
  Report Type: 
  Country: None (occurrence: None)
  Receive Date: 20090602
  Receipt Date: 20090518
  Transmission Date: 20091009
  Serious: Yes (Death)
  Sender: FDA-Public Use
  Company Number: US-PFIZER INC-2009201660

PATIENT
  Sex: Female
  Weight: 33 kg

DRUGS (4)
  1. ZYVOX [Suspect]
     Indication: ENTEROCOCCAL INFECTION
     Dosage: 200 MG, 2X/DAY
     Dates: start: 20090101, end: 20090101
  2. PHENYTOIN [Concomitant]
  3. LAMICTAL [Concomitant]
  4. EPOETIN ALFA [Concomitant]

REACTIONS (2)
  - DRUG INEFFECTIVE [None]
  - SEPSIS [None]
